FAERS Safety Report 17523232 (Version 2)
Quarter: 2020Q3

REPORT INFORMATION
  Report Type: Spontaneous
  Country: HR (occurrence: HR)
  Receive Date: 20200311
  Receipt Date: 20200312
  Transmission Date: 20201104
  Serious: Yes (Hospitalization, Other)
  Sender: FDA-Public Use
  Company Number: HR-ROCHE-2525501

PATIENT
  Sex: Male

DRUGS (25)
  1. THIOTEPA. [Concomitant]
     Active Substance: THIOTEPA
     Route: 065
  2. POLATUZUMAB VEDOTIN. [Suspect]
     Active Substance: POLATUZUMAB VEDOTIN
     Dosage: 5TH CYCLE
     Route: 042
     Dates: start: 20190708
  3. MABTHERA [Suspect]
     Active Substance: RITUXIMAB
     Dosage: 3RD CYCLE
     Route: 058
     Dates: start: 20190527
  4. SINERSUL [Concomitant]
     Active Substance: SULFAMETHOXAZOLE\TRIMETHOPRIM
     Route: 065
  5. MTX [METHOTREXATE] [Concomitant]
     Active Substance: METHOTREXATE SODIUM
     Route: 065
  6. MABTHERA [Suspect]
     Active Substance: RITUXIMAB
     Dosage: 4TH CYCLE
     Route: 058
     Dates: start: 20190617
  7. MABTHERA [Suspect]
     Active Substance: RITUXIMAB
     Dosage: 5TH CYCLE
     Route: 058
     Dates: start: 20190708
  8. BENDAMUSTINE [Suspect]
     Active Substance: BENDAMUSTINE
     Dosage: 0.9% NACL 250 ML 1ST AND 2ND DAY / INF. 1 H, 2ND CYCLE
     Route: 042
     Dates: start: 20190507
  9. BENDAMUSTINE [Suspect]
     Active Substance: BENDAMUSTINE
     Dosage: 0.9% NACL 250 ML 1ST AND 2ND DAY / INF. 1 H, 3RD CYCLE
     Route: 042
     Dates: start: 20190527
  10. PREDNISONE. [Concomitant]
     Active Substance: PREDNISONE
     Route: 065
  11. DEXAMETHASONE. [Concomitant]
     Active Substance: DEXAMETHASONE
     Route: 065
  12. POLATUZUMAB VEDOTIN. [Suspect]
     Active Substance: POLATUZUMAB VEDOTIN
     Indication: DIFFUSE LARGE B-CELL LYMPHOMA REFRACTORY
     Dosage: 1ST CYCLE
     Route: 042
     Dates: start: 20190415
  13. MABTHERA [Suspect]
     Active Substance: RITUXIMAB
     Dosage: 2ND CYCLE
     Route: 058
     Dates: start: 20190507
  14. DOXORUBICIN HYDROCHLORIDE. [Concomitant]
     Active Substance: DOXORUBICIN HYDROCHLORIDE
     Route: 065
  15. POLATUZUMAB VEDOTIN. [Suspect]
     Active Substance: POLATUZUMAB VEDOTIN
     Dosage: 2ND CYCLE
     Route: 042
     Dates: start: 20190507
  16. MABTHERA [Suspect]
     Active Substance: RITUXIMAB
     Indication: DIFFUSE LARGE B-CELL LYMPHOMA REFRACTORY
     Dosage: 1ST CYCLE
     Route: 058
     Dates: start: 20190415
  17. POLATUZUMAB VEDOTIN. [Suspect]
     Active Substance: POLATUZUMAB VEDOTIN
     Dosage: 4TH CYCLE
     Route: 042
     Dates: start: 20190617
  18. BENDAMUSTINE [Suspect]
     Active Substance: BENDAMUSTINE
     Indication: DIFFUSE LARGE B-CELL LYMPHOMA REFRACTORY
     Dosage: 0.9% NACL 250 ML 1ST AND 2ND DAY / INF. 1 H, 1ST CYCLE?2.5 MG/ML
     Route: 042
     Dates: start: 20190415
  19. BENDAMUSTINE [Suspect]
     Active Substance: BENDAMUSTINE
     Dosage: 0.9% NACL 250 ML 1ST AND 2ND DAY / INF. 1 H, 5TH CYCLE
     Route: 042
     Dates: start: 20190708
  20. ACYCLOVIR [ACICLOVIR] [Concomitant]
     Active Substance: ACYCLOVIR
     Route: 065
  21. POLATUZUMAB VEDOTIN. [Suspect]
     Active Substance: POLATUZUMAB VEDOTIN
     Dosage: 3RD CYCLE
     Route: 042
     Dates: start: 20190527
  22. BENDAMUSTINE [Suspect]
     Active Substance: BENDAMUSTINE
     Dosage: 0.9% NACL 250 ML 1ST AND 2ND DAY / INF. 1 H, 4TH CYCLE
     Route: 042
     Dates: start: 20190617
  23. VINCRISTINE [Concomitant]
     Active Substance: VINCRISTINE
  24. CYCLOPHOSPHAMIDE. [Concomitant]
     Active Substance: CYCLOPHOSPHAMIDE
  25. CYTARABINE. [Concomitant]
     Active Substance: CYTARABINE
     Route: 065

REACTIONS (12)
  - Thrombocytopenia [Recovered/Resolved]
  - Pancytopenia [Unknown]
  - Psoriasis [Unknown]
  - Neuropathy peripheral [Recovered/Resolved]
  - Neutropenia [Recovered/Resolved]
  - Pyrexia [Unknown]
  - Drop attacks [Unknown]
  - Cough [Unknown]
  - Respiratory tract infection viral [Unknown]
  - Diffuse large B-cell lymphoma recurrent [Unknown]
  - Rheumatoid arthritis [Unknown]
  - Hypogammaglobulinaemia [Unknown]

NARRATIVE: CASE EVENT DATE: 201905
